FAERS Safety Report 18972326 (Version 1)
Quarter: 2021Q1

REPORT INFORMATION
  Report Type: Spontaneous
  Country: US (occurrence: US)
  Receive Date: 20210305
  Receipt Date: 20210305
  Transmission Date: 20210420
  Serious: Yes (Other)
  Sender: FDA-Public Use
  Company Number: US-PROCTER_AND_GAMBLE-PH21001104

PATIENT
  Age: 64 Year
  Sex: Female

DRUGS (1)
  1. METAMUCIL [Suspect]
     Active Substance: PLANTAGO SEED
     Dosage: UNKNOWN (POWDER FOR ORAL SOLUTION)
     Route: 048

REACTIONS (2)
  - Hypersensitivity [Unknown]
  - Anaphylactic shock [Recovered/Resolved]
